FAERS Safety Report 9508107 (Version 2)
Quarter: 2013Q3

REPORT INFORMATION
  Report Type: Spontaneous
  Country: None (occurrence: DE)
  Receive Date: 20130909
  Receipt Date: 20130909
  Transmission Date: 20140515
  Serious: Yes (Other)
  Sender: FDA-Public Use
  Company Number: DE-TEVA-2002R010052

PATIENT
  Age: 62 Year
  Sex: Male
  Weight: 72 kg

DRUGS (1)
  1. BISOPROLOL [Suspect]
     Indication: HYPERTENSION
     Dosage: 5 MG
     Route: 048
     Dates: start: 20010418

REACTIONS (3)
  - Acute myeloid leukaemia [Recovering/Resolving]
  - Neutropenia [Unknown]
  - Leukopenia [Unknown]
